FAERS Safety Report 19054280 (Version 1)
Quarter: 2021Q1

REPORT INFORMATION
  Report Type: Spontaneous
  Country: JP (occurrence: JP)
  Receive Date: 20210325
  Receipt Date: 20210325
  Transmission Date: 20210420
  Serious: Yes (Other)
  Sender: FDA-Public Use
  Company Number: JP-CHEPLA-C20211430_01

PATIENT
  Age: 16 Month
  Sex: Female

DRUGS (19)
  1. ETOPOSIDE. [Suspect]
     Active Substance: ETOPOSIDE
     Indication: HAEMOPHAGOCYTIC LYMPHOHISTIOCYTOSIS
     Dosage: LOW?DOSE ETOPOSICLE (50 MG/M^2/DAY)
  2. CYCLOPHOSPHAMIDE MONOHYDRATE [Suspect]
     Active Substance: CYCLOPHOSPHAMIDE
     Indication: CORD BLOOD TRANSPLANT THERAPY
     Dosage: 60 MG/KG, UNK
  3. CYCLOSPORIN [Suspect]
     Active Substance: CYCLOSPORINE
     Indication: PROPHYLAXIS AGAINST GRAFT VERSUS HOST DISEASE
  4. ETOPOSIDE. [Suspect]
     Active Substance: ETOPOSIDE
     Indication: B PRECURSOR TYPE ACUTE LEUKAEMIA
     Dosage: CONDITIONING REGIMEN OF ETOPOSIDE (100 MG/M^2/DAY, DAYS ?3 TO ?2)
  5. CYCLOPHOSPHAMIDE MONOHYDRATE [Suspect]
     Active Substance: CYCLOPHOSPHAMIDE
     Indication: CORD BLOOD TRANSPLANT THERAPY
     Dosage: 50 MG/KG/DAY, DAYS 3 TO 4
  6. BLINATUMOMAB [Concomitant]
     Active Substance: BLINATUMOMAB
     Indication: PRODUCT USED FOR UNKNOWN INDICATION
  7. LIPOSOME?INCORPORATED DEXAMETHASONE [Suspect]
     Active Substance: DEXAMETHASONE
     Indication: HAEMOPHAGOCYTIC LYMPHOHISTIOCYTOSIS
  8. METHOTREXATE. [Suspect]
     Active Substance: METHOTREXATE
     Indication: PROPHYLAXIS AGAINST GRAFT VERSUS HOST DISEASE
  9. RUXOLITINIB [Suspect]
     Active Substance: RUXOLITINIB
     Indication: HAEMOPHAGOCYTIC LYMPHOHISTIOCYTOSIS
     Dosage: 2.5 MG TWICE DAILY, 9.2 MG/M^2/DAY, STARTING ON DAY 23
  10. TACROLIMUS. [Suspect]
     Active Substance: TACROLIMUS
     Indication: PROPHYLAXIS AGAINST GRAFT VERSUS HOST DISEASE
  11. ETOPOSIDE. [Suspect]
     Active Substance: ETOPOSIDE
     Indication: HAEMOPHAGOCYTIC LYMPHOHISTIOCYTOSIS
     Dosage: LOW?DOSE ETOPOSICLE (50 MG/M^2/DAY)
  12. GANCICLOVIR. [Suspect]
     Active Substance: GANCICLOVIR
     Indication: CYTOMEGALOVIRUS INFECTION REACTIVATION
  13. BUSULFEX [Suspect]
     Active Substance: BUSULFAN
     Indication: BONE MARROW CONDITIONING REGIMEN
     Dosage: 4.8 MG/KG, DAILY
  14. PREDNISOLONE. [Suspect]
     Active Substance: PREDNISOLONE
     Indication: HAEMOPHAGOCYTIC LYMPHOHISTIOCYTOSIS
     Dosage: CORTICOSTEROIDS (PRECLNISOLONE 2 MG/KG/DAY)
  15. FLUDARABINE [Suspect]
     Active Substance: FLUDARABINE PHOSPHATE
     Indication: B PRECURSOR TYPE ACUTE LEUKAEMIA
     Dosage: FLUDARABINE (30 MG/M^2/DAY, DAYS ?3 TO 1)
  16. MELPHALAN. [Suspect]
     Active Substance: MELPHALAN
     Indication: B PRECURSOR TYPE ACUTE LEUKAEMIA
     Dosage: MELPHALAN (80 MG/M^2/DAY, DAY?1)
  17. ETOPOSIDE. [Suspect]
     Active Substance: ETOPOSIDE
     Indication: PRECURSOR B-LYMPHOBLASTIC LYMPHOMA
     Dosage: CONDITIONING WITH ETOPOSICLE (60 MG/KG/DAY, DAY ?4)
  18. MYCOPHENOLATE MOFETIL. [Suspect]
     Active Substance: MYCOPHENOLATE MOFETIL
     Indication: PROPHYLAXIS AGAINST GRAFT VERSUS HOST DISEASE
  19. RUXOLITINIB [Suspect]
     Active Substance: RUXOLITINIB
     Indication: HAEMOPHAGOCYTIC LYMPHOHISTIOCYTOSIS
     Dosage: TAPERED FROM DAY 103 AND WAS DISCONTINUED ON DAY 134

REACTIONS (8)
  - Cytomegalovirus infection reactivation [Unknown]
  - Graft versus host disease in skin [Recovering/Resolving]
  - Product use in unapproved indication [Recovered/Resolved]
  - Klebsiella bacteraemia [Recovering/Resolving]
  - Transplant failure [Recovering/Resolving]
  - Febrile neutropenia [Recovering/Resolving]
  - Haemophagocytic lymphohistiocytosis [Recovering/Resolving]
  - Enterococcal bacteraemia [Recovering/Resolving]
